FAERS Safety Report 19075437 (Version 1)
Quarter: 2021Q1

REPORT INFORMATION
  Report Type: Spontaneous
  Country: US (occurrence: US)
  Receive Date: 20210331
  Receipt Date: 20210331
  Transmission Date: 20210420
  Serious: Yes (Other)
  Sender: FDA-Public Use
  Company Number: US-GRANULES-US-2021GRASPO00208

PATIENT
  Age: 75 Year
  Sex: Female

DRUGS (2)
  1. GABAPENTIN. [Suspect]
     Active Substance: GABAPENTIN
     Route: 048
     Dates: start: 20210314
  2. GABAPENTIN. [Suspect]
     Active Substance: GABAPENTIN
     Indication: BACK PAIN
     Route: 048
     Dates: start: 20210313

REACTIONS (11)
  - Hallucination [Recovered/Resolved]
  - Monoplegia [Recovered/Resolved]
  - Screaming [Recovered/Resolved]
  - Gait inability [Recovered/Resolved]
  - Metamorphopsia [Recovered/Resolved]
  - Agitation [Recovered/Resolved]
  - Hypoaesthesia [Recovered/Resolved]
  - Abnormal behaviour [Recovered/Resolved]
  - Suicidal ideation [Recovered/Resolved]
  - Malaise [Recovered/Resolved]
  - Pain in extremity [Recovered/Resolved]

NARRATIVE: CASE EVENT DATE: 20210313
